FAERS Safety Report 6039579-5 (Version None)
Quarter: 2009Q1

REPORT INFORMATION
  Report Type: 
  Country: None (occurrence: None)
  Receive Date: 20090116
  Receipt Date: 20090115
  Transmission Date: 20090719
  Serious: Yes (Life-Threatening)
  Sender: FDA-Public Use
  Company Number: CA-ASTRAZENECA-2009UW01257

PATIENT
  Age: 63 Year
  Sex: Female

DRUGS (4)
  1. ZESTRIL [Suspect]
     Route: 048
  2. PRINIVIL [Suspect]
     Route: 065
  3. NOVO-SPIROZINE [Concomitant]
     Route: 065
  4. PREMARIN [Concomitant]
     Route: 065

REACTIONS (3)
  - HYPERSENSITIVITY [None]
  - OEDEMA MOUTH [None]
  - TONGUE OEDEMA [None]
